FAERS Safety Report 21837711 (Version 2)
Quarter: 2023Q1

REPORT INFORMATION
  Report Type: Spontaneous
  Country: ES (occurrence: ES)
  Receive Date: 20230109
  Receipt Date: 20230110
  Transmission Date: 20230418
  Serious: Yes (Hospitalization, Other)
  Sender: FDA-Public Use
  Company Number: ES-PFIZER INC-2014332170

PATIENT
  Age: 63 Year
  Sex: Male

DRUGS (4)
  1. METHOTREXATE SODIUM [Suspect]
     Active Substance: METHOTREXATE SODIUM
     Indication: Psoriasis
     Dosage: 10 MG, WEEKLY
     Route: 048
  2. METHOTREXATE SODIUM [Suspect]
     Active Substance: METHOTREXATE SODIUM
     Indication: Psoriatic arthropathy
     Dosage: 10 MG, DAILY
     Route: 048
  3. ADALIMUMAB [Concomitant]
     Active Substance: ADALIMUMAB
     Indication: Psoriasis
     Dosage: UNK
  4. ADALIMUMAB [Concomitant]
     Active Substance: ADALIMUMAB
     Indication: Psoriatic arthropathy

REACTIONS (7)
  - Toxicity to various agents [Recovering/Resolving]
  - Accidental overdose [Recovering/Resolving]
  - Septic shock [Recovered/Resolved]
  - Pancytopenia [Recovered/Resolved]
  - Mucosal ulceration [Recovering/Resolving]
  - Psoriasis [Recovered/Resolved]
  - Condition aggravated [Recovered/Resolved]
